FAERS Safety Report 21961944 (Version 1)
Quarter: 2023Q1

REPORT INFORMATION
  Report Type: Report from Study
  Country: CA (occurrence: CA)
  Receive Date: 20230207
  Receipt Date: 20230207
  Transmission Date: 20230418
  Serious: Yes (Hospitalization, Other)
  Sender: FDA-Public Use
  Company Number: CA-GLAXOSMITHKLINE-CA2022AMR200171

PATIENT

DRUGS (2)
  1. MEPOLIZUMAB [Suspect]
     Active Substance: MEPOLIZUMAB
     Indication: Eosinophilic granulomatosis with polyangiitis
     Dosage: 300 MG, Z EVERY 4 WEEKS
     Route: 058
     Dates: start: 20210218
  2. MEPOLIZUMAB [Suspect]
     Active Substance: MEPOLIZUMAB
     Dosage: 300 MG, Z EVERY 4 WEEKS
     Route: 058

REACTIONS (11)
  - Respiratory syncytial virus infection [Unknown]
  - Haemoglobin decreased [Unknown]
  - Haematochezia [Unknown]
  - Hypoventilation [Unknown]
  - Malaise [Not Recovered/Not Resolved]
  - Rales [Unknown]
  - Fatigue [Unknown]
  - Pain [Unknown]
  - Cough [Unknown]
  - Constipation [Unknown]
  - Inappropriate schedule of product administration [Unknown]

NARRATIVE: CASE EVENT DATE: 20230131
